FAERS Safety Report 14586274 (Version 1)
Quarter: 2018Q1

REPORT INFORMATION
  Report Type: Spontaneous
  Country: DE (occurrence: DE)
  Receive Date: 20180301
  Receipt Date: 20180301
  Transmission Date: 20180509
  Serious: Yes (Other)
  Sender: FDA-Public Use
  Company Number: DE-TORRENT-00007874

PATIENT
  Age: 21 Year
  Sex: Female

DRUGS (3)
  1. VIMPAT [Suspect]
     Active Substance: LACOSAMIDE
     Indication: EPILEPSY
     Dosage: 100 MG, ONCE DAILY (QD)
  2. BRIVIACT [Suspect]
     Active Substance: BRIVARACETAM
     Indication: EPILEPSY
  3. LAMOTRIGINE. [Suspect]
     Active Substance: LAMOTRIGINE
     Indication: EPILEPSY
     Dosage: DOSE INCREASE TO 100 MG

REACTIONS (7)
  - Intentional product misuse [Unknown]
  - Listless [Recovering/Resolving]
  - Separation anxiety disorder [Unknown]
  - Unevaluable event [Unknown]
  - Seizure [Unknown]
  - Fatigue [Recovering/Resolving]
  - Depression [Recovering/Resolving]
